FAERS Safety Report 10471749 (Version 1)
Quarter: 2014Q3

REPORT INFORMATION
  Report Type: Spontaneous
  Country: JP (occurrence: JP)
  Receive Date: 20140923
  Receipt Date: 20140923
  Transmission Date: 20150326
  Serious: Yes (Death, Hospitalization)
  Sender: FDA-Public Use
  Company Number: PHHY2014JP121294

PATIENT
  Sex: Male

DRUGS (8)
  1. TS-1 [Suspect]
     Active Substance: GIMERACIL\OTERACIL POTASSIUM\TEGAFUR
  2. OXYCODONE [Concomitant]
     Active Substance: OXYCODONE
  3. MIRTAZAPINE. [Concomitant]
     Active Substance: MIRTAZAPINE
  4. PACLITAXEL. [Suspect]
     Active Substance: PACLITAXEL
  5. CISPLATIN. [Suspect]
     Active Substance: CISPLATIN
  6. ZOLPIDEM [Suspect]
     Active Substance: ZOLPIDEM\ZOLPIDEM TARTRATE
     Indication: INSOMNIA
  7. CELECOXIB. [Concomitant]
     Active Substance: CELECOXIB
     Route: 048
  8. ZOPICLONE [Suspect]
     Active Substance: ZOPICLONE
     Indication: INSOMNIA

REACTIONS (8)
  - Decreased appetite [Unknown]
  - Hypoaesthesia [Unknown]
  - Drug ineffective [Unknown]
  - Diarrhoea [Unknown]
  - Death [Fatal]
  - Abnormal behaviour [Recovered/Resolved]
  - Restlessness [Recovered/Resolved]
  - Delirium [Recovered/Resolved]
